FAERS Safety Report 9017516 (Version 2)
Quarter: 2013Q2

REPORT INFORMATION
  Report Type: Spontaneous
  Country: CN (occurrence: CN)
  Receive Date: 20130117
  Receipt Date: 20130501
  Transmission Date: 20140414
  Serious: Yes (Death)
  Sender: FDA-Public Use
  Company Number: CN-MILLENNIUM PHARMACEUTICALS, INC.-2013-00261

PATIENT
  Sex: 0

DRUGS (2)
  1. VELCADE [Suspect]
     Indication: PLASMA CELL MYELOMA
     Dosage: 1.3 MG/M2, CYCLIC
     Route: 065
  2. DEXAMETHASONE [Suspect]
     Indication: PLASMA CELL MYELOMA
     Dosage: 20 MG, CYCLIC
     Route: 065

REACTIONS (1)
  - Hepatitis B [Fatal]
